FAERS Safety Report 9970067 (Version 5)
Quarter: 2014Q2

REPORT INFORMATION
  Report Type: Spontaneous
  Country: US (occurrence: US)
  Receive Date: 20140306
  Receipt Date: 20140626
  Transmission Date: 20141212
  Serious: Yes (Hospitalization)
  Sender: FDA-Public Use
  Company Number: 2014SP001071

PATIENT
  Age: 90 Year
  Sex: Male

DRUGS (11)
  1. FLUOROURACIL [Suspect]
     Indication: COLORECTAL CANCER METASTATIC
     Route: 042
     Dates: start: 20131216, end: 20140226
  2. FLUOROURACIL [Suspect]
     Indication: COLORECTAL CANCER METASTATIC
     Route: 042
     Dates: start: 20131216, end: 20140226
  3. FLUOROURACIL [Suspect]
     Indication: COLORECTAL CANCER METASTATIC
  4. OXALIPLATIN [Suspect]
     Indication: COLORECTAL CANCER METASTATIC
     Route: 042
     Dates: start: 20131216, end: 20140226
  5. OXALIPLATIN [Suspect]
     Indication: COLORECTAL CANCER METASTATIC
  6. BEVACIZUMAB [Suspect]
     Indication: COLORECTAL CANCER METASTATIC
     Route: 042
     Dates: start: 20131216, end: 20140226
  7. BEVACIZUMAB [Suspect]
     Indication: COLORECTAL CANCER METASTATIC
  8. WARFARIN [Suspect]
     Indication: ATRIAL FIBRILLATION
     Dates: start: 2010
  9. WARFARIN [Suspect]
     Indication: ATRIAL FIBRILLATION
     Dates: start: 20140224
  10. WARFARIN [Suspect]
     Indication: ATRIAL FIBRILLATION
  11. METOPROLOL [Concomitant]
     Indication: HYPERTENSION
     Dates: start: 2011

REACTIONS (3)
  - Rectal haemorrhage [Recovered/Resolved]
  - Epistaxis [Unknown]
  - International normalised ratio increased [Recovered/Resolved]
